FAERS Safety Report 16465611 (Version 2)
Quarter: 2019Q2

REPORT INFORMATION
  Report Type: Spontaneous
  Country: IN (occurrence: IN)
  Receive Date: 20190621
  Receipt Date: 20190621
  Transmission Date: 20190711
  Serious: Yes (Other)
  Sender: FDA-Public Use
  Company Number: PHHY2019IN139156

PATIENT
  Age: 57 Year
  Sex: Male

DRUGS (6)
  1. MYCOPHENOLATE MOFETIL. [Suspect]
     Active Substance: MYCOPHENOLATE MOFETIL
     Indication: IMMUNOSUPPRESSANT DRUG THERAPY
  2. PREDNISOLONE. [Suspect]
     Active Substance: PREDNISOLONE
     Indication: IMMUNOSUPPRESSANT DRUG THERAPY
     Dosage: 5 UNK, UNK
     Route: 065
  3. TACROLIMUS. [Suspect]
     Active Substance: TACROLIMUS
     Indication: IMMUNOSUPPRESSANT DRUG THERAPY
  4. MYCOPHENOLATE MOFETIL. [Suspect]
     Active Substance: MYCOPHENOLATE MOFETIL
     Indication: RENAL TRANSPLANT
     Route: 065
  5. PREDNISOLONE. [Suspect]
     Active Substance: PREDNISOLONE
     Indication: RENAL TRANSPLANT
     Dosage: 10 MG, QD
     Route: 065
  6. TACROLIMUS. [Suspect]
     Active Substance: TACROLIMUS
     Indication: RENAL TRANSPLANT
     Route: 065

REACTIONS (15)
  - Complications of transplanted kidney [Not Recovered/Not Resolved]
  - Hemiparesis [Recovered/Resolved]
  - Musculoskeletal stiffness [Recovered/Resolved]
  - Chronic allograft nephropathy [Unknown]
  - Cryptococcosis [Recovered/Resolved]
  - Central nervous system vasculitis [Recovered/Resolved]
  - Extensor plantar response [Recovered/Resolved]
  - Kidney fibrosis [Unknown]
  - Facial paralysis [Recovered/Resolved]
  - Lacunar infarction [Recovered/Resolved]
  - Product use in unapproved indication [Unknown]
  - Pyrexia [Recovered/Resolved]
  - Fungal infection [Unknown]
  - Kidney transplant rejection [Unknown]
  - Pain [Recovered/Resolved]
